APPROVED DRUG PRODUCT: DISULFIRAM
Active Ingredient: DISULFIRAM
Strength: 500MG
Dosage Form/Route: TABLET;ORAL
Application: A202652 | Product #002
Applicant: HIKMA PHARMACEUTICALS USA INC
Approved: Feb 5, 2014 | RLD: No | RS: No | Type: DISCN